FAERS Safety Report 9038831 (Version 1)
Quarter: 2013Q1

REPORT INFORMATION
  Report Type: Report from Study
  Country: US (occurrence: US)
  Receive Date: 20130129
  Receipt Date: 20130129
  Transmission Date: 20140127
  Serious: No
  Sender: FDA-Public Use
  Company Number: US-ABBOTT-12P-163-0933251-00

PATIENT
  Age: 53 Year
  Sex: Female

DRUGS (3)
  1. HUMIRA 40 MG/0.8 ML PEN [Suspect]
     Indication: CROHN^S DISEASE
  2. HYDROCODONE [Concomitant]
     Indication: PRODUCT USED FOR UNKNOWN INDICATION
     Dosage: 7.5/500 4 TIMES DAILY
  3. LISINOPRIL [Concomitant]
     Indication: HYPERTENSION

REACTIONS (6)
  - Injection site pain [Unknown]
  - Injection site pain [Unknown]
  - Crohn^s disease [Unknown]
  - Pain [Unknown]
  - Diarrhoea [Unknown]
  - Muscle spasms [Unknown]
